FAERS Safety Report 19116389 (Version 1)
Quarter: 2021Q2

REPORT INFORMATION
  Report Type: Spontaneous
  Country: FR (occurrence: FR)
  Receive Date: 20210409
  Receipt Date: 20210409
  Transmission Date: 20210717
  Serious: Yes (Hospitalization)
  Sender: FDA-Public Use
  Company Number: FR-ASTRAZENECA-2021A258787

PATIENT
  Age: 66 Year
  Sex: Male

DRUGS (2)
  1. CALQUENCE [Suspect]
     Active Substance: ACALABRUTINIB
     Indication: CHRONIC LYMPHOCYTIC LEUKAEMIA
     Dosage: 200.0MG UNKNOWN
     Route: 048
     Dates: start: 20210122
  2. FAMOTIDINE. [Suspect]
     Active Substance: FAMOTIDINE
     Indication: PROPHYLAXIS
     Dosage: 1.0DF UNKNOWN
     Route: 048
     Dates: start: 202102

REACTIONS (1)
  - Epilepsy [Not Recovered/Not Resolved]

NARRATIVE: CASE EVENT DATE: 20210321
